FAERS Safety Report 10410775 (Version 1)
Quarter: 2014Q3

REPORT INFORMATION
  Report Type: Spontaneous
  Country: US (occurrence: US)
  Receive Date: 20140826
  Receipt Date: 20140826
  Transmission Date: 20150326
  Serious: Yes (Hospitalization)
  Sender: FDA-Public Use
  Company Number: US-INCYTE CORPORATION-2014IN002361

PATIENT
  Age: 91 Year
  Sex: Male

DRUGS (5)
  1. JAKAFI [Suspect]
     Active Substance: RUXOLITINIB
     Indication: MYELODYSPLASTIC SYNDROME
     Dosage: 10 MG, QD
     Route: 048
  2. PLAVIX [Concomitant]
     Active Substance: CLOPIDOGREL BISULFATE
  3. PROTONIX [Concomitant]
     Active Substance: PANTOPRAZOLE SODIUM
  4. ULORIC [Concomitant]
     Active Substance: FEBUXOSTAT
  5. COREG [Concomitant]
     Active Substance: CARVEDILOL

REACTIONS (5)
  - Somnolence [Unknown]
  - Enzyme abnormality [Unknown]
  - Dehydration [Unknown]
  - Drug level changed [Unknown]
  - Platelet count increased [Unknown]

NARRATIVE: CASE EVENT DATE: 20140816
